FAERS Safety Report 8621313-3 (Version None)
Quarter: 2012Q3

REPORT INFORMATION
  Report Type: 
  Country: None (occurrence: None)
  Receive Date: 20120824
  Receipt Date: 20120821
  Transmission Date: 20120928
  Serious: Yes (Other)
  Sender: FDA-Public Use
  Company Number: FR-PFIZER INC-2012204210

PATIENT
  Age: 69 Year
  Sex: Male

DRUGS (12)
  1. LEUPROLIDE ACETATE [Concomitant]
     Indication: PROSTATE CANCER
     Dosage: 11.25 MG, EVERY 3 MONTHS
     Route: 023
  2. ATORVASTATIN [Suspect]
     Dosage: 40 MG, 1X/DAY
     Route: 048
  3. ALDACTONE [Concomitant]
     Dosage: 12.5 MG, 1X/DAY
     Route: 048
  4. ALFUZOSIN HYDROCHLORIDE [Concomitant]
     Dosage: 10 MG, 1X/DAY
     Route: 048
  5. DESLORATADINE [Concomitant]
     Dosage: 1 DF, 1X/DAY
     Route: 048
  6. METFORMIN HYDROCHLORIDE [Suspect]
     Dosage: 2 DF, 1X/DAY
     Route: 048
     Dates: end: 20120113
  7. PERINDOPRIL ERBUMINE [Concomitant]
     Dosage: 10 MG, 1X/DAY
     Route: 048
  8. TAXOTERE [Concomitant]
     Indication: PROSTATE CANCER
     Dosage: 1 DF, EVERY 3 WEEKS
     Route: 042
     Dates: start: 20100101
  9. BISOPROLOL FUMARATE [Concomitant]
     Dosage: 2.5 MG, 1X/DAY
     Route: 048
  10. PLAVIX [Concomitant]
     Dosage: 75 MG, 1X/DAY
     Route: 048
  11. METFORMIN HCL [Suspect]
     Indication: TYPE 2 DIABETES MELLITUS
     Dosage: 2 DF, UNK
     Route: 048
     Dates: start: 20120113, end: 20120513
  12. FUROSEMIDE [Concomitant]
     Dosage: 20 MG, 1X/DAY
     Route: 048

REACTIONS (3)
  - BLOOD GLUCOSE FLUCTUATION [None]
  - ABDOMINAL PAIN [None]
  - MEDICATION RESIDUE [None]
